FAERS Safety Report 8522807-1 (Version None)
Quarter: 2012Q3

REPORT INFORMATION
  Report Type: 
  Country: None (occurrence: None)
  Receive Date: 20120720
  Receipt Date: 20120706
  Transmission Date: 20120928
  Serious: Yes (Other)
  Sender: FDA-Public Use
  Company Number: US-MYLANLABS-2012S1010411

PATIENT
  Age: 61 Year
  Sex: Female
  Weight: 79.38 kg

DRUGS (5)
  1. SINGULAIR [Concomitant]
  2. LISINOPRIL [Concomitant]
  3. ZOLPIDEM TARTRATE [Suspect]
     Indication: INSOMNIA
     Route: 048
     Dates: start: 20120430, end: 20120501
  4. ZOLPIDEM TARTRATE [Suspect]
     Route: 048
     Dates: start: 20120430, end: 20120501
  5. DETROL LA [Concomitant]

REACTIONS (3)
  - MEMORY IMPAIRMENT [None]
  - SYNCOPE [None]
  - CONVULSION [None]
